FAERS Safety Report 23779108 (Version 1)
Quarter: 2024Q2

REPORT INFORMATION
  Report Type: Spontaneous
  Country: FR (occurrence: FR)
  Receive Date: 20240424
  Receipt Date: 20240424
  Transmission Date: 20240716
  Serious: Yes (Hospitalization)
  Sender: FDA-Public Use
  Company Number: None

PATIENT
  Age: 4 Year
  Sex: Male
  Weight: 18 kg

DRUGS (8)
  1. PIPERACILLIN SODIUM\TAZOBACTAM SODIUM [Suspect]
     Active Substance: PIPERACILLIN SODIUM\TAZOBACTAM SODIUM
     Indication: Pericarditis infective
     Route: 042
     Dates: start: 20240309, end: 20240329
  2. RACECADOTRIL [Concomitant]
     Active Substance: RACECADOTRIL
     Indication: Product used for unknown indication
  3. CAPTOPRIL [Concomitant]
     Active Substance: CAPTOPRIL
     Indication: Product used for unknown indication
  4. SPIRONOLACTONE [Concomitant]
     Active Substance: SPIRONOLACTONE
     Indication: Product used for unknown indication
  5. ESOMEPRAZOLE [Concomitant]
     Active Substance: ESOMEPRAZOLE
     Indication: Product used for unknown indication
  6. FUROSEMIDE [Concomitant]
     Active Substance: FUROSEMIDE
     Indication: Product used for unknown indication
  7. VITAMIN K [Concomitant]
     Active Substance: PHYTONADIONE
     Indication: Product used for unknown indication
     Dates: start: 20240311, end: 20240311
  8. POTASSIUM LIBERTY PHARMA 3 %, sirop [Concomitant]
     Indication: Product used for unknown indication

REACTIONS (1)
  - Catheter site thrombosis [Recovering/Resolving]

NARRATIVE: CASE EVENT DATE: 20240321
